FAERS Safety Report 6704497-3 (Version None)
Quarter: 2010Q2

REPORT INFORMATION
  Report Type: 
  Country: None (occurrence: None)
  Receive Date: 20100430
  Receipt Date: 20100419
  Transmission Date: 20101027
  Serious: Yes (Other)
  Sender: FDA-Public Use
  Company Number: PHHY2010JP14669

PATIENT
  Age: 57 Year
  Sex: Female

DRUGS (6)
  1. ZOMETA [Suspect]
     Indication: METASTASES TO BONE
     Dosage: 4 MG, EVERY 4 WEEKS
     Route: 042
     Dates: start: 20090619, end: 20091005
  2. AREDIA [Suspect]
     Indication: METASTASES TO BONE
     Dosage: 45 MG, BIW
     Dates: start: 20021224, end: 20041227
  3. AREDIA [Suspect]
     Dosage: 90 MG, EVERY 4 WEEKS
     Route: 042
     Dates: start: 20050117, end: 20060515
  4. TAMOXIFEN CITRATE [Concomitant]
     Indication: BREAST CANCER
  5. ANASTROZOLE [Concomitant]
     Indication: BREAST CANCER
  6. EXEMESTANE [Concomitant]

REACTIONS (4)
  - FEMUR FRACTURE [None]
  - PAIN IN EXTREMITY [None]
  - STRESS FRACTURE [None]
  - WALKING AID USER [None]
